FAERS Safety Report 5953638-4 (Version None)
Quarter: 2008Q4

REPORT INFORMATION
  Report Type: 
  Country: None (occurrence: None)
  Receive Date: 20081114
  Receipt Date: 20081031
  Transmission Date: 20090506
  Serious: Yes (Other)
  Sender: FDA-Public Use
  Company Number: B0545183A

PATIENT
  Age: 35 Year
  Sex: Female

DRUGS (10)
  1. TRIZIVIR [Suspect]
     Indication: HIV INFECTION
     Route: 048
     Dates: start: 20040907, end: 20040914
  2. TELZIR [Suspect]
     Indication: HIV INFECTION
     Route: 048
     Dates: start: 20050125
  3. COMBIVIR [Suspect]
     Indication: HIV INFECTION
     Route: 048
     Dates: start: 20050615
  4. VIREAD [Suspect]
     Indication: HIV INFECTION
     Route: 048
     Dates: start: 20050125
  5. FUZEON [Suspect]
     Indication: HIV INFECTION
     Route: 065
     Dates: start: 20050401
  6. VIDEX [Suspect]
     Indication: HIV INFECTION
     Route: 065
     Dates: start: 20050615
  7. ZOVIRAX [Concomitant]
     Dates: start: 20041119
  8. ZOVIRAX [Concomitant]
     Route: 061
     Dates: start: 20041119
  9. ATAZANAVIR SULFATE [Concomitant]
     Dates: start: 20040409
  10. BACTRIM [Concomitant]
     Dates: start: 20050125

REACTIONS (4)
  - DRUG RASH WITH EOSINOPHILIA AND SYSTEMIC SYMPTOMS [None]
  - DRUG RESISTANCE [None]
  - GASTROINTESTINAL DISORDER [None]
  - IMMUNE SYSTEM DISORDER [None]
